FAERS Safety Report 20950476 (Version 1)
Quarter: 2022Q2

REPORT INFORMATION
  Report Type: Spontaneous
  Country: US (occurrence: US)
  Receive Date: 20220613
  Receipt Date: 20220613
  Transmission Date: 20220721
  Serious: Yes (Hospitalization)
  Sender: FDA-Public Use
  Company Number: US-Blueprint Medicines Corporation-SP-US-2022-001783

PATIENT
  Age: 79 Year
  Sex: Male

DRUGS (1)
  1. AYVAKIT [Suspect]
     Active Substance: AVAPRITINIB
     Indication: Malignant melanoma
     Route: 048
     Dates: start: 20220415

REACTIONS (2)
  - Urinary tract infection [Recovered/Resolved]
  - Off label use [Unknown]
